FAERS Safety Report 8914251 (Version 2)
Quarter: 2012Q4

REPORT INFORMATION
  Report Type: 
  Country: US (occurrence: US)
  Receive Date: 20121119
  Receipt Date: 20121231
  Transmission Date: 20130627
  Serious: Yes (Other)
  Sender: FDA-Public Use
  Company Number: PHEH2012US022449

PATIENT

DRUGS (1)
  1. TEGRETOL [Suspect]
     Dosage: 15 ml, BID

REACTIONS (2)
  - Convulsion [Unknown]
  - Drug ineffective [Unknown]
